FAERS Safety Report 9765167 (Version 4)
Quarter: 2016Q3

REPORT INFORMATION
  Report Type: Spontaneous
  Country: US (occurrence: US)
  Receive Date: 20131217
  Receipt Date: 20160826
  Transmission Date: 20161109
  Serious: Yes (Hospitalization, Other)
  Sender: FDA-Public Use
  Company Number: US-GLAXOSMITHKLINE-A1012496A

PATIENT
  Age: 56 Year
  Sex: Female

DRUGS (14)
  1. ACITRETIN. [Suspect]
     Active Substance: ACITRETIN
     Indication: PSORIASIS
  2. CLONAZEPAM. [Concomitant]
     Active Substance: CLONAZEPAM
  3. GEMFIBROZIL. [Concomitant]
     Active Substance: GEMFIBROZIL
  4. CYCLOBENZAPRINE [Concomitant]
     Active Substance: CYCLOBENZAPRINE
  5. ATORVASTATIN [Concomitant]
     Active Substance: ATORVASTATIN
  6. LISINOPRIL. [Concomitant]
     Active Substance: LISINOPRIL
  7. SERTRALINE [Concomitant]
     Active Substance: SERTRALINE HYDROCHLORIDE
  8. MORPHINE SULFATE ER [Concomitant]
     Active Substance: MORPHINE SULFATE
  9. SORIATANE [Suspect]
     Active Substance: ACITRETIN
     Indication: PSORIASIS
  10. ACITRETIN. [Suspect]
     Active Substance: ACITRETIN
     Indication: PUSTULAR PSORIASIS
     Dosage: 25 MG, UNK
     Dates: start: 2005
  11. HYDROCODONE [Concomitant]
     Active Substance: HYDROCODONE
  12. SORIATANE [Suspect]
     Active Substance: ACITRETIN
     Indication: PUSTULAR PSORIASIS
     Dosage: 25 MG, UNK
     Route: 048
     Dates: start: 2009
  13. METFORMIN [Concomitant]
     Active Substance: METFORMIN HYDROCHLORIDE
  14. NABUMETONE. [Concomitant]
     Active Substance: NABUMETONE

REACTIONS (11)
  - Skin exfoliation [Not Recovered/Not Resolved]
  - Combined pulmonary fibrosis and emphysema [Unknown]
  - Insomnia [Unknown]
  - Peripheral swelling [Unknown]
  - Body temperature fluctuation [Unknown]
  - Skin atrophy [Unknown]
  - Pneumonia [Recovering/Resolving]
  - Pustular psoriasis [Unknown]
  - Hyperhidrosis [Unknown]
  - Alopecia [Unknown]
  - Discomfort [Unknown]

NARRATIVE: CASE EVENT DATE: 2009
